FAERS Safety Report 7799261-0 (Version None)
Quarter: 2011Q4

REPORT INFORMATION
  Report Type: 
  Country: None (occurrence: None)
  Receive Date: 20111006
  Receipt Date: 20110217
  Transmission Date: 20120403
  Serious: No
  Sender: FDA-Public Use
  Company Number: US-GLAXOSMITHKLINE-A0914181A

PATIENT
  Age: 17 Year
  Sex: Female

DRUGS (1)
  1. DUAC [Suspect]
     Indication: PRODUCT USED FOR UNKNOWN INDICATION
     Route: 061
     Dates: start: 20100301

REACTIONS (2)
  - PRODUCT QUALITY ISSUE [None]
  - SUNBURN [None]
